FAERS Safety Report 15930025 (Version 1)
Quarter: 2019Q1

REPORT INFORMATION
  Report Type: Spontaneous
  Country: US (occurrence: US)
  Receive Date: 20190115
  Receipt Date: 20190115
  Transmission Date: 20190417
  Serious: Yes (Hospitalization)
  Sender: FDA-Public Use
  Company Number: None

PATIENT
  Age: 62 Year
  Sex: Male
  Weight: 84.8 kg

DRUGS (3)
  1. NEULASTA [Suspect]
     Active Substance: PEGFILGRASTIM
     Dates: end: 20181227
  2. CISPLATIN. [Suspect]
     Active Substance: CISPLATIN
     Dates: end: 20181227
  3. GEMCITABINE HYDROCHLORIDE. [Suspect]
     Active Substance: GEMCITABINE HYDROCHLORIDE
     Dates: end: 20181226

REACTIONS (3)
  - Dysuria [None]
  - Culture urine positive [None]
  - Nocturia [None]

NARRATIVE: CASE EVENT DATE: 20181228
